FAERS Safety Report 15759206 (Version 1)
Quarter: 2018Q4

REPORT INFORMATION
  Report Type: Spontaneous
  Country: ES (occurrence: ES)
  Receive Date: 20181226
  Receipt Date: 20181226
  Transmission Date: 20190205
  Serious: Yes (Hospitalization)
  Sender: FDA-Public Use
  Company Number: ES-AMGEN-ESPCT2018181144

PATIENT
  Age: 81 Year
  Sex: Female

DRUGS (16)
  1. DIGOXINA [Concomitant]
     Active Substance: DIGOXIN
     Indication: CARDIAC DISORDER
     Dosage: UNK, QD (1/2 TABLET  PER 24 HOURS)
  2. TERIPARATIDE [Suspect]
     Active Substance: TERIPARATIDE
     Indication: OSTEOPOROSIS
     Dosage: 20 MUG, QWK
     Route: 058
     Dates: start: 2017
  3. TERIPARATIDE [Suspect]
     Active Substance: TERIPARATIDE
     Dosage: 20 MUG, QD
     Route: 058
     Dates: start: 20180918
  4. SEGURIL [Concomitant]
     Active Substance: FUROSEMIDE
     Dosage: 1 DF, QD DAILY (LUNCH)
  5. SEGURIL [Concomitant]
     Active Substance: FUROSEMIDE
     Indication: PLEURAL EFFUSION
     Dosage: 2 DF, QD EACH MORNING (AT BREAKFAST)
  6. VITAMIN D [Concomitant]
     Active Substance: CHOLECALCIFEROL
     Indication: OSTEOPOROSIS
     Dosage: UNK
  7. CARBOCAL D [Concomitant]
     Active Substance: CALCIUM\VITAMIN D
     Indication: OSTEOPOROSIS
     Dosage: 1 DF, QD
  8. PROLIA [Suspect]
     Active Substance: DENOSUMAB
     Indication: PRODUCT USED FOR UNKNOWN INDICATION
     Dosage: UNK
     Route: 065
  9. SERTRALINE [Concomitant]
     Active Substance: SERTRALINE HYDROCHLORIDE
     Indication: ANTIDEPRESSANT THERAPY
     Dosage: 1 DF, UNK
  10. BISOPROLOL [Concomitant]
     Active Substance: BISOPROLOL
     Indication: CARDIAC DISORDER
     Dosage: 1.25 MG, QD
  11. MASDIL [Concomitant]
     Active Substance: DILTIAZEM HYDROCHLORIDE
     Indication: CARDIAC DISORDER
     Dosage: 1 DF, Q12H
  12. TRAYENTA [Concomitant]
     Active Substance: LINAGLIPTIN
     Indication: DIABETES MELLITUS
     Dosage: 1 DF, Q12H
  13. EPLERENONA [Concomitant]
     Active Substance: EPLERENONE
     Indication: PLEURAL EFFUSION
     Dosage: UNK
  14. OMEPRAZOLE. [Concomitant]
     Active Substance: OMEPRAZOLE
     Indication: GASTROOESOPHAGEAL REFLUX DISEASE
     Dosage: 1 DF, QD
  15. SINVASTATINA [Concomitant]
     Active Substance: SIMVASTATIN
     Indication: PRODUCT USED FOR UNKNOWN INDICATION
     Dosage: 1 DF, QD
  16. PLUSVENT [Concomitant]
     Active Substance: FLUTICASONE PROPIONATE\SALMETEROL XINAFOATE
     Dosage: 1 DF, QD
     Route: 055

REACTIONS (5)
  - Acute respiratory failure [Recovered/Resolved]
  - Cardiac failure [Recovered/Resolved]
  - Gastric polyps [Recovered/Resolved]
  - Pyrexia [Recovered/Resolved]
  - Large intestine polyp [Recovered/Resolved]

NARRATIVE: CASE EVENT DATE: 201807
